FAERS Safety Report 15302821 (Version 7)
Quarter: 2022Q1

REPORT INFORMATION
  Report Type: Spontaneous
  Country: GB (occurrence: GB)
  Receive Date: 20180821
  Receipt Date: 20220314
  Transmission Date: 20220423
  Serious: Yes (Other)
  Sender: FDA-Public Use
  Company Number: PHHY2017GB204577

PATIENT
  Age: 55 Year
  Sex: Female

DRUGS (65)
  1. METHOTREXATE [Suspect]
     Active Substance: METHOTREXATE
     Indication: Product used for unknown indication
     Dosage: UNK
     Route: 065
  2. ABATACEPT [Suspect]
     Active Substance: ABATACEPT
     Indication: Rheumatoid arthritis
     Dosage: 125 MG, QW
     Route: 058
     Dates: start: 20160902
  3. ABATACEPT [Suspect]
     Active Substance: ABATACEPT
     Dosage: 125 MG, QW
     Route: 058
     Dates: start: 20161202
  4. ABATACEPT [Suspect]
     Active Substance: ABATACEPT
     Dosage: 3 MG
     Route: 058
  5. ABATACEPT [Suspect]
     Active Substance: ABATACEPT
     Dosage: 125 MG, WEEKLY
     Route: 058
     Dates: start: 20160902
  6. ABATACEPT [Suspect]
     Active Substance: ABATACEPT
     Dosage: 125 MG, WEEKLY
     Route: 058
     Dates: start: 20161202
  7. ABATACEPT [Suspect]
     Active Substance: ABATACEPT
     Dosage: 125 MG, QW
     Route: 058
     Dates: start: 20161202
  8. ABATACEPT [Suspect]
     Active Substance: ABATACEPT
     Dosage: 3 MG
     Route: 058
     Dates: start: 20161202
  9. ABATACEPT [Suspect]
     Active Substance: ABATACEPT
     Dosage: 3 MG
     Route: 058
  10. ABATACEPT [Suspect]
     Active Substance: ABATACEPT
     Dosage: UNK
     Route: 065
  11. ABATACEPT [Suspect]
     Active Substance: ABATACEPT
     Dosage: UNK
     Route: 065
  12. ABATACEPT [Suspect]
     Active Substance: ABATACEPT
     Dosage: 125 MG, WEEKLY
     Route: 058
     Dates: start: 20161002
  13. ABATACEPT [Suspect]
     Active Substance: ABATACEPT
     Dosage: 125 MG, QW
     Route: 058
     Dates: start: 20161202
  14. ABATACEPT [Suspect]
     Active Substance: ABATACEPT
     Dosage: 125 MG, QW
     Route: 058
     Dates: start: 20161202
  15. ABATACEPT [Suspect]
     Active Substance: ABATACEPT
     Dosage: 125 MG, QW
     Route: 058
     Dates: start: 20161202
  16. ABATACEPT [Suspect]
     Active Substance: ABATACEPT
     Dosage: 125 MG, QW
     Route: 058
     Dates: start: 20161202
  17. METHOTREXATE SODIUM [Suspect]
     Active Substance: METHOTREXATE SODIUM
     Indication: Blood pressure measurement
     Dosage: UNK
     Route: 065
  18. METHOTREXATE SODIUM [Suspect]
     Active Substance: METHOTREXATE SODIUM
     Indication: Blood pressure measurement
     Dosage: UNK
     Route: 065
  19. METHOTREXATE SODIUM [Suspect]
     Active Substance: METHOTREXATE SODIUM
     Dosage: UNK
     Route: 065
  20. ATORVASTATIN [Concomitant]
     Active Substance: ATORVASTATIN
     Indication: Product used for unknown indication
     Dosage: UNK
     Route: 065
  21. ATORVASTATIN [Concomitant]
     Active Substance: ATORVASTATIN
     Dosage: UNK
     Route: 065
  22. ATORVASTATIN [Concomitant]
     Active Substance: ATORVASTATIN
     Dosage: UNK
     Route: 065
  23. ATORVASTATIN [Concomitant]
     Active Substance: ATORVASTATIN
     Route: 065
  24. BACLOFEN [Concomitant]
     Active Substance: BACLOFEN
     Indication: Rheumatoid arthritis
     Dosage: UNK
     Route: 065
  25. BACLOFEN [Concomitant]
     Active Substance: BACLOFEN
     Dosage: UNK
     Route: 065
  26. BACLOFEN [Concomitant]
     Active Substance: BACLOFEN
     Route: 065
  27. BUMETANIDE [Concomitant]
     Active Substance: BUMETANIDE
     Indication: Rheumatoid arthritis
     Dosage: UNK
     Route: 065
  28. BUMETANIDE [Concomitant]
     Active Substance: BUMETANIDE
     Dosage: UNK
     Route: 065
  29. FLUCLOXACILLIN [Concomitant]
     Active Substance: FLUCLOXACILLIN
     Indication: Product used for unknown indication
     Dosage: UNK
     Route: 065
  30. FLUCLOXACILLIN [Concomitant]
     Active Substance: FLUCLOXACILLIN
     Dosage: UNK
     Route: 065
  31. FLUCLOXACILLIN [Concomitant]
     Active Substance: FLUCLOXACILLIN
     Dosage: UNK
     Route: 065
  32. FOLIC ACID [Concomitant]
     Active Substance: FOLIC ACID
     Indication: Product used for unknown indication
     Dosage: UNK
     Route: 065
  33. FOLIC ACID [Concomitant]
     Active Substance: FOLIC ACID
     Dosage: UNK
     Route: 065
  34. FOLIC ACID [Concomitant]
     Active Substance: FOLIC ACID
     Route: 065
  35. CHOLECALCIFEROL [Concomitant]
     Active Substance: CHOLECALCIFEROL
     Indication: Product used for unknown indication
     Dosage: UNK (UNK)
     Route: 065
  36. CHOLECALCIFEROL [Concomitant]
     Active Substance: CHOLECALCIFEROL
     Dosage: UNK
     Route: 065
  37. LEVEMIR [Concomitant]
     Active Substance: INSULIN DETEMIR
     Indication: Product used for unknown indication
     Dosage: UNK
     Route: 065
  38. LEVEMIR [Concomitant]
     Active Substance: INSULIN DETEMIR
     Dosage: UNK
     Route: 065
  39. LEVEMIR [Concomitant]
     Active Substance: INSULIN DETEMIR
     Route: 065
  40. METFORMIN [Concomitant]
     Active Substance: METFORMIN HYDROCHLORIDE
     Indication: Product used for unknown indication
     Dosage: UNK
     Route: 065
  41. METFORMIN [Concomitant]
     Active Substance: METFORMIN HYDROCHLORIDE
     Dosage: UNK
     Route: 065
  42. METFORMIN [Concomitant]
     Active Substance: METFORMIN HYDROCHLORIDE
     Route: 065
  43. MORPHINE [Concomitant]
     Active Substance: MORPHINE
     Indication: Product used for unknown indication
     Dosage: UNK (PATCHES)
     Route: 065
  44. MORPHINE [Concomitant]
     Active Substance: MORPHINE
     Dosage: UNK (PATCHES)
     Route: 065
  45. MORPHINE [Concomitant]
     Active Substance: MORPHINE
     Dosage: UNK
     Route: 062
  46. NAPROXEN [Concomitant]
     Active Substance: NAPROXEN
     Indication: Product used for unknown indication
     Dosage: UNK
     Route: 065
  47. NAPROXEN [Concomitant]
     Active Substance: NAPROXEN
     Dosage: UNK
     Route: 065
  48. NAPROXEN [Concomitant]
     Active Substance: NAPROXEN
     Route: 065
  49. RAMIPRIL [Concomitant]
     Active Substance: RAMIPRIL
     Indication: Blood pressure measurement
     Dosage: UNK
     Route: 065
  50. RAMIPRIL [Concomitant]
     Active Substance: RAMIPRIL
     Indication: Blood pressure abnormal
     Dosage: UNK
     Route: 065
  51. RAMIPRIL [Concomitant]
     Active Substance: RAMIPRIL
     Route: 065
  52. TRAMADOL [Concomitant]
     Active Substance: TRAMADOL
     Indication: Product used for unknown indication
     Dosage: UNK
     Route: 065
  53. TRAMADOL [Concomitant]
     Active Substance: TRAMADOL
     Route: 065
  54. NOVORAPID [Concomitant]
     Active Substance: INSULIN ASPART
     Indication: Product used for unknown indication
     Dosage: UNK
     Route: 065
  55. NOVORAPID [Concomitant]
     Active Substance: INSULIN ASPART
     Dosage: UNK
     Route: 065
  56. NOVORAPID [Concomitant]
     Active Substance: INSULIN ASPART
     Dosage: UNK
     Route: 065
  57. NOVORAPID [Concomitant]
     Active Substance: INSULIN ASPART
     Route: 065
  58. LANSOPRAZOLE [Concomitant]
     Active Substance: LANSOPRAZOLE
     Indication: Product used for unknown indication
     Dosage: UNK
     Route: 065
  59. LANSOPRAZOLE [Concomitant]
     Active Substance: LANSOPRAZOLE
     Indication: Product used for unknown indication
     Dosage: UNK
     Route: 065
  60. LANSOPRAZOLE [Concomitant]
     Active Substance: LANSOPRAZOLE
     Dosage: UNK
     Route: 065
  61. LANSOPRAZOLE [Concomitant]
     Active Substance: LANSOPRAZOLE
     Route: 065
  62. VITAMIN D NOS [Concomitant]
     Active Substance: VITAMIN D NOS
     Indication: Product used for unknown indication
     Dosage: UNK
     Route: 065
  63. CHOLECALCIFEROL [Concomitant]
     Active Substance: CHOLECALCIFEROL
     Indication: Product used for unknown indication
     Dosage: UNK
     Route: 065
  64. CHOLECALCIFEROL [Concomitant]
     Active Substance: CHOLECALCIFEROL
     Dosage: UNK
     Route: 065
  65. CHOLECALCIFEROL [Concomitant]
     Active Substance: CHOLECALCIFEROL
     Route: 065

REACTIONS (7)
  - Ingrowing nail [Unknown]
  - Cellulitis [Unknown]
  - Tooth disorder [Unknown]
  - Skin exfoliation [Unknown]
  - Foot fracture [Unknown]
  - Blister [Unknown]
  - Blister infected [Unknown]

NARRATIVE: CASE EVENT DATE: 20171101
